FAERS Safety Report 22525859 (Version 2)
Quarter: 2023Q4

REPORT INFORMATION
  Report Type: Spontaneous
  Country: US (occurrence: US)
  Receive Date: 20230606
  Receipt Date: 20231017
  Transmission Date: 20240110
  Serious: No
  Sender: FDA-Public Use
  Company Number: US-BIOVITRUM-2023-US-011076

PATIENT
  Age: 16 Year
  Sex: Female

DRUGS (2)
  1. KINERET [Suspect]
     Active Substance: ANAKINRA
     Indication: Still^s disease
     Dosage: 100 MG DAILY
     Route: 058
     Dates: start: 20230118
  2. KINERET [Suspect]
     Active Substance: ANAKINRA
     Dosage: 100 MG TWICE A DAY
     Route: 058
     Dates: start: 202301

REACTIONS (7)
  - Still^s disease [Unknown]
  - Intentional product misuse [Not Recovered/Not Resolved]
  - Condition aggravated [Unknown]
  - Injection site reaction [Recovered/Resolved]
  - Injection site bruising [Recovered/Resolved]
  - Injection site swelling [Recovered/Resolved]
  - Injection site erythema [Recovered/Resolved]

NARRATIVE: CASE EVENT DATE: 20230118
